FAERS Safety Report 14700631 (Version 1)
Quarter: 2018Q1

REPORT INFORMATION
  Report Type: Spontaneous
  Country: US (occurrence: US)
  Receive Date: 20180328
  Receipt Date: 20180328
  Transmission Date: 20180509
  Serious: No
  Sender: FDA-Public Use
  Company Number: None

PATIENT
  Age: 54 Year
  Sex: Male

DRUGS (1)
  1. MEKINIST [Suspect]
     Active Substance: TRAMETINIB DIMETHYL SULFOXIDE

REACTIONS (6)
  - Vision blurred [None]
  - Headache [None]
  - Tremor [None]
  - Nausea [None]
  - Fatigue [None]
  - Chills [None]

NARRATIVE: CASE EVENT DATE: 20180328
